FAERS Safety Report 5556771-4 (Version None)
Quarter: 2007Q4

REPORT INFORMATION
  Report Type: 
  Country: None (occurrence: None)
  Receive Date: 20071130
  Receipt Date: 20070821
  Transmission Date: 20080405
  Serious: No
  Sender: FDA-Public Use
  Company Number: 2006PV022958

PATIENT
  Age: 74 Year
  Sex: Male
  Weight: 99.8 kg

DRUGS (18)
  1. EXENATIDE(EXENATIDE) PEN,DISPOSABLE [Suspect]
     Indication: TYPE 2 DIABETES MELLITUS
     Dosage: 10UG, 2/D,SUBCUTANEOUS;10UG, 2/D,SUBCUTANEOUS;5UG, 2/D,SUBCUTANEOUS 10UG, 2/D,SUBCUTANEOUS
     Route: 058
     Dates: start: 20060805, end: 20060905
  2. EXENATIDE(EXENATIDE) PEN,DISPOSABLE [Suspect]
     Indication: TYPE 2 DIABETES MELLITUS
     Dosage: 10UG, 2/D,SUBCUTANEOUS;10UG, 2/D,SUBCUTANEOUS;5UG, 2/D,SUBCUTANEOUS 10UG, 2/D,SUBCUTANEOUS
     Route: 058
     Dates: start: 20060301
  3. EXENATIDE(EXENATIDE) PEN,DISPOSABLE [Suspect]
     Indication: TYPE 2 DIABETES MELLITUS
     Dosage: 10UG, 2/D,SUBCUTANEOUS;10UG, 2/D,SUBCUTANEOUS;5UG, 2/D,SUBCUTANEOUS 10UG, 2/D,SUBCUTANEOUS
     Route: 058
     Dates: start: 20060725
  4. EXENATIDE(EXENATIDE) PEN,DISPOSABLE [Suspect]
     Indication: TYPE 2 DIABETES MELLITUS
     Dosage: 10UG, 2/D,SUBCUTANEOUS;10UG, 2/D,SUBCUTANEOUS;5UG, 2/D,SUBCUTANEOUS 10UG, 2/D,SUBCUTANEOUS
     Route: 058
     Dates: start: 20060910
  5. EXENATIDE(EXENATIDE) PEN,DISPOSABLE [Suspect]
  6. LIPITOR [Concomitant]
  7. HUMALOG [Concomitant]
  8. LISINOPRIL [Concomitant]
  9. ACTOS [Concomitant]
  10. AMARYL [Concomitant]
  11. FUROSEMIDE [Concomitant]
  12. NEURONTIN [Concomitant]
  13. RINOCORT [Concomitant]
  14. ADVAIR DISKUS 100/50 [Concomitant]
  15. COMBIVENT [Concomitant]
  16. A-Z VITAMIN [Concomitant]
  17. ASPIRIN [Concomitant]
  18. PROSCAR [Concomitant]

REACTIONS (7)
  - COLD SWEAT [None]
  - DECREASED APPETITE [None]
  - DIZZINESS [None]
  - FEELING HOT [None]
  - FEELING JITTERY [None]
  - NAUSEA [None]
  - WEIGHT DECREASED [None]
